FAERS Safety Report 23864310 (Version 1)
Quarter: 2024Q2

REPORT INFORMATION
  Report Type: Spontaneous
  Country: US (occurrence: US)
  Receive Date: 20240516
  Receipt Date: 20240516
  Transmission Date: 20240716
  Serious: No
  Sender: FDA-Public Use
  Company Number: US-MYLANLABS-2023M1134423

PATIENT
  Age: 65 Year
  Sex: Female

DRUGS (2)
  1. ESTRADIOL [Suspect]
     Active Substance: ESTRADIOL
     Indication: Product used for unknown indication
     Dosage: 1 GRAM, 3XW (1 GRAM CREAM HAS 0.1 MG ESTRADIOL, RX: 1 G CREAM 3 TIMES A WEEK)
     Route: 065
  2. ESTRADIOL [Suspect]
     Active Substance: ESTRADIOL
     Dosage: 1.44 GRAM, 3XW (1.44 GRAM CREAM HAS 0.1 MG ESTRADIOL, 3 TIMES A WEEK)
     Route: 065

REACTIONS (3)
  - Incorrect dose administered by device [Unknown]
  - Product substitution issue [Unknown]
  - Product packaging quantity issue [Unknown]
